FAERS Safety Report 13822588 (Version 1)
Quarter: 2017Q3

REPORT INFORMATION
  Report Type: Spontaneous
  Country: FR (occurrence: FR)
  Receive Date: 20170801
  Receipt Date: 20170801
  Transmission Date: 20171127
  Serious: Yes (Hospitalization, Congenital Anomaly, Other)
  Sender: FDA-Public Use
  Company Number: FR-ELI_LILLY_AND_COMPANY-FR201707007903

PATIENT

DRUGS (4)
  1. LEVOTHYROX [Suspect]
     Active Substance: LEVOTHYROXINE
     Indication: PRODUCT USED FOR UNKNOWN INDICATION
     Dosage: 1 DF, DAILY
     Route: 064
  2. SECTRAL [Suspect]
     Active Substance: ACEBUTOLOL HYDROCHLORIDE
     Indication: CARDIAC DISORDER
     Dosage: 0.5 DF, BID
     Route: 064
     Dates: end: 20130227
  3. ADCIRCA [Suspect]
     Active Substance: TADALAFIL
     Indication: CARDIAC DISORDER
     Dosage: 20 MG, DAILY
     Route: 064
     Dates: end: 20130227
  4. PREVISCAN                          /00261401/ [Suspect]
     Active Substance: PENTOXIFYLLINE
     Indication: CARDIAC DISORDER
     Dosage: 0.5 DF, DAILY
     Route: 064
     Dates: end: 20121205

REACTIONS (5)
  - Apgar score low [Unknown]
  - Foetal exposure during pregnancy [Recovered/Resolved]
  - Microcephaly [Recovering/Resolving]
  - Foetal growth restriction [Recovering/Resolving]
  - Premature baby [Recovered/Resolved]
